FAERS Safety Report 5105986-8 (Version None)
Quarter: 2006Q3

REPORT INFORMATION
  Report Type: 
  Country: None (occurrence: None)
  Receive Date: 20060912
  Receipt Date: 20060830
  Transmission Date: 20061208
  Serious: Yes (Other)
  Sender: FDA-Public Use
  Company Number: 2006106838

PATIENT
  Age: 69 Year
  Sex: Female
  Weight: 74.8435 kg

DRUGS (5)
  1. LYRICA [Suspect]
     Indication: NEUROPATHY
     Dosage: 75 MG (75 MG, 1 IN 1 D)
     Dates: start: 20060101
  2. GLIMEPIRIDE [Concomitant]
  3. NEXIUM [Concomitant]
  4. LOVASTATIN [Concomitant]
  5. MOTRIN [Concomitant]

REACTIONS (8)
  - ACNE [None]
  - ANGIOPATHY [None]
  - DRY SKIN [None]
  - PAIN IN EXTREMITY [None]
  - RASH [None]
  - SKIN EXFOLIATION [None]
  - VASCULAR SKIN DISORDER [None]
  - VEIN DISORDER [None]
